FAERS Safety Report 7618124-4 (Version None)
Quarter: 2011Q3

REPORT INFORMATION
  Report Type: 
  Country: None (occurrence: None)
  Receive Date: 20110718
  Receipt Date: 20110706
  Transmission Date: 20111222
  Serious: Yes (Death, Hospitalization, Other)
  Sender: FDA-Public Use
  Company Number: US-BAYER-200927977NA

PATIENT
  Age: 84 Year
  Sex: Female
  Weight: 83.9 kg

DRUGS (9)
  1. HEPARIN [Concomitant]
     Dosage: UNK
     Route: 042
     Dates: start: 20050815
  2. TRASYLOL [Suspect]
     Indication: MITRAL VALVE REPAIR
  3. HEPARIN [Concomitant]
     Dosage: UNK
     Dates: start: 20050811
  4. LASIX [Concomitant]
     Dosage: 20MG-60MG DAILY
     Route: 048
     Dates: start: 20050805, end: 20060312
  5. VANCOMYCIN [Concomitant]
     Dosage: 1 G, UNK
     Route: 042
     Dates: start: 20050815
  6. TRASYLOL [Suspect]
     Indication: CORONARY ARTERY BYPASS
     Dosage: 200 ML, UNK, PUMP PRIME
     Route: 042
     Dates: start: 20050815, end: 20050815
  7. ACETYLSALICYLIC ACID SRT [Concomitant]
     Dosage: UNK
     Dates: start: 20050805
  8. AMLODIPINE [Concomitant]
     Dosage: 10 MG, QD
     Route: 048
     Dates: start: 20050809
  9. ENALAPRIL MALEATE [Concomitant]
     Dosage: 2.5MG-5MG
     Route: 048
     Dates: start: 20050805, end: 20060301

REACTIONS (9)
  - UNEVALUABLE EVENT [None]
  - FEAR [None]
  - RENAL FAILURE [None]
  - ANXIETY [None]
  - DEATH [None]
  - PAIN [None]
  - DEPRESSION [None]
  - INJURY [None]
  - ANHEDONIA [None]
